FAERS Safety Report 24802938 (Version 1)
Quarter: 2025Q1

REPORT INFORMATION
  Report Type: Spontaneous
  Country: ES (occurrence: ES)
  Receive Date: 20250103
  Receipt Date: 20250103
  Transmission Date: 20250408
  Serious: Yes (Other)
  Sender: ROCHE
  Company Number: None

PATIENT
  Age: 73 Year
  Sex: Male

DRUGS (1)
  1. ATEZOLIZUMAB [Suspect]
     Active Substance: ATEZOLIZUMAB
     Indication: Bladder transitional cell carcinoma recurrent
     Route: 042
     Dates: start: 20230127

REACTIONS (1)
  - Pustular psoriasis [Recovered/Resolved]

NARRATIVE: CASE EVENT DATE: 20230606
